FAERS Safety Report 5692152-0 (Version None)
Quarter: 2008Q2

REPORT INFORMATION
  Report Type: 
  Country: None (occurrence: None)
  Receive Date: 20080402
  Receipt Date: 20080328
  Transmission Date: 20081010
  Serious: Yes (Hospitalization)
  Sender: FDA-Public Use
  Company Number: A0718102A

PATIENT
  Age: 47 Year
  Sex: Female

DRUGS (7)
  1. LEXIVA [Suspect]
     Indication: HIV INFECTION
     Dosage: 1400MG TWICE PER DAY
     Route: 048
     Dates: start: 20080205
  2. TRUVADA [Suspect]
     Indication: HIV INFECTION
     Dosage: 1TAB PER DAY
     Route: 048
     Dates: start: 20080205
  3. PAROXETINE HCL [Concomitant]
  4. OMEPRAZOLE [Concomitant]
  5. ESIDRIX [Concomitant]
  6. METOPROLOL TARTRATE [Concomitant]
  7. LOVAZA [Concomitant]

REACTIONS (4)
  - CD4 LYMPHOCYTES DECREASED [None]
  - DYSPNOEA [None]
  - T-LYMPHOCYTE COUNT INCREASED [None]
  - VIRAL LOAD INCREASED [None]
